FAERS Safety Report 15153910 (Version 1)
Quarter: 2018Q3

REPORT INFORMATION
  Report Type: Spontaneous
  Country: US (occurrence: US)
  Receive Date: 20180717
  Receipt Date: 20180717
  Transmission Date: 20181010
  Serious: No
  Sender: FDA-Public Use
  Company Number: US-SA-2018SA160419

PATIENT
  Age: 80 Year
  Sex: Female

DRUGS (2)
  1. ALLEGRA ALLERGY [Suspect]
     Active Substance: FEXOFENADINE HYDROCHLORIDE
     Indication: RESPIRATORY DISORDER
     Dosage: ALLEGRA 12 HOUR
     Route: 065
     Dates: start: 20180602
  2. ALLEGRA ALLERGY [Suspect]
     Active Substance: FEXOFENADINE HYDROCHLORIDE
     Dosage: ALLEGRA 24 HOUR TABLETS
     Route: 065
     Dates: start: 20180702

REACTIONS (2)
  - Dyspnoea [Unknown]
  - Drug dose omission [Unknown]
